FAERS Safety Report 17061704 (Version 1)
Quarter: 2019Q4

REPORT INFORMATION
  Report Type: Spontaneous
  Country: PE (occurrence: PE)
  Receive Date: 20191121
  Receipt Date: 20191121
  Transmission Date: 20200122
  Serious: Yes (Other)
  Sender: FDA-Public Use
  Company Number: PE-009507513-1910PER014276

PATIENT
  Age: 30 Year
  Sex: Female

DRUGS (2)
  1. NUVARING [Suspect]
     Active Substance: ETHINYL ESTRADIOL\ETONOGESTREL
     Dosage: 1 VAGINAL RING EVERY 3 WEEKS
     Route: 067
     Dates: start: 20190928
  2. NUVARING [Suspect]
     Active Substance: ETHINYL ESTRADIOL\ETONOGESTREL
     Indication: HORMONAL CONTRACEPTION
     Dosage: UNK
     Route: 067
     Dates: start: 2009

REACTIONS (3)
  - Tachycardia [Unknown]
  - Dizziness [Unknown]
  - Bipolar I disorder [Unknown]

NARRATIVE: CASE EVENT DATE: 2016
